FAERS Safety Report 9201500 (Version 3)
Quarter: 2014Q4

REPORT INFORMATION
  Report Type: Spontaneous
  Country: US (occurrence: US)
  Receive Date: 20130401
  Receipt Date: 20141202
  Transmission Date: 20150529
  Serious: Yes (Hospitalization, Disabling)
  Sender: FDA-Public Use
  Company Number: US-BAYER-2013-036529

PATIENT
  Age: 26 Year
  Sex: Female
  Weight: 66 kg

DRUGS (20)
  1. ALBUTEROL SULFATE. [Concomitant]
     Active Substance: ALBUTEROL SULFATE
     Dosage: 2.5 MG/3ML 0.083% IN NEBULIZER, ONE UNIT DOSEVIA NEBULIZER AS NEEDE INHALATION
  2. ATIVAN [Concomitant]
     Active Substance: LORAZEPAM
  3. ALBUTEROL. [Concomitant]
     Active Substance: ALBUTEROL
     Dosage: UNK
     Dates: start: 1987
  4. PROAIR HFA [Concomitant]
     Active Substance: ALBUTEROL SULFATE
     Dosage: 90 MCG/24HR, UNK
  5. ADVAIR HFA [Concomitant]
     Active Substance: FLUTICASONE PROPIONATE\SALMETEROL XINAFOATE
     Dosage: 250-50 DISKUS, 1 1 INHALATION TWISE A DAY
     Route: 048
  6. FLUTICASONE PROPIONATE. [Concomitant]
     Active Substance: FLUTICASONE PROPIONATE
     Dosage: 50 MCG/24HR, UNK
     Route: 045
  7. EXCEDRIN MIGRAINE [Concomitant]
     Active Substance: ACETAMINOPHEN\ASPIRIN\CAFFEINE
     Dosage: UNK
     Dates: start: 2000
  8. ALBUTEROL SULFATE. [Concomitant]
     Active Substance: ALBUTEROL SULFATE
     Dosage: 108 MCG/ACT, 2 PUFFS FOUR TIMES DAILY AS NEEDED- INHALATIONUNK
  9. ATORVASTATIN [Concomitant]
     Active Substance: ATORVASTATIN
     Indication: CEREBROVASCULAR ACCIDENT PROPHYLAXIS
     Dosage: UNK
     Dates: start: 201107
  10. INSULIN [Concomitant]
     Active Substance: INSULIN NOS
  11. VERSED [Concomitant]
     Active Substance: MIDAZOLAM HYDROCHLORIDE
  12. NAPROXEN. [Concomitant]
     Active Substance: NAPROXEN
     Dosage: ONCE OR TWICE MONTH
     Dates: start: 2002
  13. OCELLA [Suspect]
     Active Substance: DROSPIRENONE\ETHINYL ESTRADIOL
     Indication: CONTRACEPTION
     Dosage: UNK
     Dates: start: 2004, end: 2011
  14. LIPITOR [Concomitant]
     Active Substance: ATORVASTATIN CALCIUM
  15. IBUPROFEN. [Concomitant]
     Active Substance: IBUPROFEN
     Dosage: ONCE OR TWICE MONTH
     Dates: start: 2002
  16. YASMIN [Suspect]
     Active Substance: DROSPIRENONE\ETHINYL ESTRADIOL
     Indication: CONTRACEPTION
     Dosage: UNK
     Dates: start: 2004, end: 2011
  17. TOPAMAX [Concomitant]
     Active Substance: TOPIRAMATE
  18. LIDOCAIN [Concomitant]
  19. ADVAIR DISKUS [Concomitant]
     Active Substance: FLUTICASONE PROPIONATE\SALMETEROL XINAFOATE
     Dosage: UNK
     Dates: start: 2000
  20. IMITREX [Concomitant]
     Active Substance: SUMATRIPTAN\SUMATRIPTAN SUCCINATE
     Dosage: UNK
     Dates: start: 200502

REACTIONS (9)
  - Thalamic infarction [None]
  - Headache [None]
  - Sensory loss [None]
  - Cerebrovascular accident [None]
  - Pain [None]
  - Fear [None]
  - Asthenia [None]
  - Injury [None]
  - Hypoaesthesia [None]

NARRATIVE: CASE EVENT DATE: 20110716
